FAERS Safety Report 4621600-X (Version None)
Quarter: 2005Q1

REPORT INFORMATION
  Report Type: 
  Country: None (occurrence: None)
  Receive Date: 20050329
  Receipt Date: 20050314
  Transmission Date: 20050727
  Serious: Yes (Hospitalization)
  Sender: FDA-Public Use
  Company Number: IBF20050012

PATIENT
  Age: 7 Day
  Sex: Male
  Weight: 1.1 kg

DRUGS (1)
  1. IBUPROFEN [Suspect]
     Indication: PATENT DUCTUS ARTERIOSUS
     Dosage: 5-10 MG/KG DAILY NGT
     Dates: start: 20030101, end: 20030101

REACTIONS (4)
  - INTESTINAL PERFORATION [None]
  - LEUKOCYTOSIS [None]
  - NEONATAL DISORDER [None]
  - PNEUMOPERITONEUM [None]
